FAERS Safety Report 23404095 (Version 1)
Quarter: 2024Q1

REPORT INFORMATION
  Report Type: Spontaneous
  Country: JP (occurrence: JP)
  Receive Date: 20240116
  Receipt Date: 20240116
  Transmission Date: 20240409
  Serious: Yes (Hospitalization, Other)
  Sender: FDA-Public Use
  Company Number: JP-BEH-2024167069

PATIENT
  Age: 71 Year
  Sex: Male
  Weight: 49 kg

DRUGS (6)
  1. PRIVIGEN [Suspect]
     Active Substance: HUMAN IMMUNOGLOBULIN G
     Indication: Chronic inflammatory demyelinating polyradiculoneuropathy
     Dosage: 5 GRAM, QID
     Route: 042
     Dates: start: 20231129, end: 20231202
  2. METHYLCOBALAMIN [Concomitant]
     Active Substance: METHYLCOBALAMIN
     Dosage: 500 UNK
     Route: 048
     Dates: start: 20150312, end: 20231202
  3. TOCOPHERYL NICOTINATE [Concomitant]
     Active Substance: TOCOPHERYL NICOTINATE, D-.ALPHA.
     Dosage: UNK
     Route: 048
     Dates: start: 20231122, end: 20231202
  4. CARBOCYSTEINE [Concomitant]
     Active Substance: CARBOCYSTEINE
     Dosage: UNK
     Route: 048
     Dates: start: 20230825, end: 20231202
  5. FUDOSTEINE [Concomitant]
     Active Substance: FUDOSTEINE
     Dosage: UNK
     Route: 048
     Dates: start: 20230825, end: 20231202
  6. ERYTHROCINE [ERYTHROMYCIN STEARATE] [Concomitant]
     Dosage: UNK
     Route: 048
     Dates: start: 20231006, end: 20231221

REACTIONS (6)
  - Drug eruption [Recovering/Resolving]
  - Rash [Recovering/Resolving]
  - Pruritus [Recovering/Resolving]
  - Erythema [Recovering/Resolving]
  - Pustule [Recovering/Resolving]
  - Acute generalised exanthematous pustulosis [Unknown]

NARRATIVE: CASE EVENT DATE: 20231203
